FAERS Safety Report 7743308-4 (Version None)
Quarter: 2011Q3

REPORT INFORMATION
  Report Type: 
  Country: None (occurrence: None)
  Receive Date: 20110909
  Receipt Date: 20110909
  Transmission Date: 20111222
  Serious: Yes (Life-Threatening, Hospitalization)
  Sender: FDA-Public Use
  Company Number: None

PATIENT
  Sex: Male
  Weight: 90.7194 kg

DRUGS (1)
  1. ADVAIR DISKUS 250/50 [Suspect]
     Indication: BRONCHITIS
     Dates: start: 20000101, end: 20090101

REACTIONS (1)
  - PNEUMONIA [None]
